FAERS Safety Report 12426474 (Version 3)
Quarter: 2020Q2

REPORT INFORMATION
  Report Type: Report from Study
  Country: US (occurrence: US)
  Receive Date: 20160601
  Receipt Date: 20200429
  Transmission Date: 20200713
  Serious: Yes (Hospitalization)
  Sender: FDA-Public Use
  Company Number: US-MYLANLABS-2016M1022137

PATIENT
  Sex: Female
  Weight: 56.24 kg

DRUGS (2)
  1. CLOZAPINE. [Suspect]
     Active Substance: CLOZAPINE
     Indication: BIPOLAR DISORDER
     Dosage: 200 MILLIGRAM, BID
  2. CLOZAPINE. [Suspect]
     Active Substance: CLOZAPINE
     Indication: MANIA

REACTIONS (2)
  - Hospitalisation [Recovered/Resolved]
  - Bipolar I disorder [Unknown]
